FAERS Safety Report 8514679-6 (Version None)
Quarter: 2012Q3

REPORT INFORMATION
  Report Type: 
  Country: None (occurrence: None)
  Receive Date: 20120717
  Receipt Date: 20120703
  Transmission Date: 20120928
  Serious: Yes (Hospitalization, Other)
  Sender: FDA-Public Use
  Company Number: US-ACTELION-A-NJ2011-50650

PATIENT

DRUGS (16)
  1. MICRO-K [Concomitant]
  2. IMDUR [Concomitant]
  3. OMEPRAZOLE [Concomitant]
  4. LANOXIN [Concomitant]
  5. ACYCLOVIR [Concomitant]
  6. ASPIRIN [Concomitant]
  7. BENADRYL [Concomitant]
  8. ADALAT [Concomitant]
  9. PREMARIN [Concomitant]
  10. LASIX [Concomitant]
  11. EPOPROSTENOL SODIUM [Suspect]
     Indication: PULMONARY ARTERIAL HYPERTENSION
     Dosage: 44 NG/KG, PER MIN
     Route: 041
     Dates: start: 20100902
  12. TRENTAL [Concomitant]
  13. ZOCOR [Concomitant]
  14. HUMALOG [Concomitant]
  15. NEOSPORIN [Concomitant]
  16. LANTUS [Concomitant]

REACTIONS (11)
  - CHEST PAIN [None]
  - ASPIRATION PLEURAL CAVITY [None]
  - COUGH [None]
  - LUNG NEOPLASM [None]
  - PNEUMONIA FUNGAL [None]
  - PNEUMONIA [None]
  - CLOSTRIDIAL INFECTION [None]
  - PARANASAL SINUS HYPERSECRETION [None]
  - HEADACHE [None]
  - URINARY TRACT INFECTION [None]
  - PLEURAL EFFUSION [None]
